FAERS Safety Report 15588036 (Version 7)
Quarter: 2020Q1

REPORT INFORMATION
  Report Type: Spontaneous
  Country: US (occurrence: US)
  Receive Date: 20181105
  Receipt Date: 20200327
  Transmission Date: 20200409
  Serious: Yes (Disabling)
  Sender: FDA-Public Use
  Company Number: US-PFIZER INC-2018443155

PATIENT
  Age: 47 Year
  Sex: Female
  Weight: 140 kg

DRUGS (21)
  1. NORCO [Concomitant]
     Active Substance: ACETAMINOPHEN\HYDROCODONE BITARTRATE
     Indication: PAIN
     Dosage: 1 DF, AS NEEDED (10 MG-325 MG TEBLET; TAKE ONE TABLET EVERY 4 HOURS AS NEEDED) (MAX PER 24 HOURS)
     Dates: start: 20140219
  2. NORTRIPTYLINE [Concomitant]
     Active Substance: NORTRIPTYLINE
     Indication: PAIN
     Dosage: UNK, 1X/DAY, (TAKE 1-2  CAPSULE BEDTIME)
     Dates: start: 20140611
  3. SUPER B COMPLEX WITH C [Concomitant]
     Dosage: UNK, DAILY (TAKE ONE DAILY)
  4. OMEPRAZOLE. [Concomitant]
     Active Substance: OMEPRAZOLE
     Dosage: 20 MG, DAILY BEFORE BREAKFAST
     Dates: start: 20120925
  5. DIAZEPAM. [Concomitant]
     Active Substance: DIAZEPAM
     Indication: ANXIETY
     Dosage: 5 MG, AS NEEDED, (TAKE ONE TABLET (5MG) THREE TIMES A DAY AS NEEDED)
     Dates: start: 20190624
  6. OLMESARTAN [Concomitant]
     Active Substance: OLMESARTAN
     Dosage: 20 MG, 1X/DAY (1 TABLET (20MG) ONCE DAILY )
     Dates: start: 20200127
  7. HYDROCHLOROTHIAZIDE/OLMESARTAN [Concomitant]
     Active Substance: HYDROCHLOROTHIAZIDE\OLMESARTAN MEDOXOMIL
     Indication: RENAL DISORDER
     Dosage: 1 DF, 1X/DAY  (OLMESARTAN 20MG HYDROCHLOROTHIAZIDE 12.5MG TABLET; TAKE 1 TABLET ONCE DAILY)
     Dates: start: 20190211
  8. OXYCODONE AND ACETAMINOPHEN [Concomitant]
     Active Substance: ACETAMINOPHEN\OXYCODONE HYDROCHLORIDE
     Indication: NEUROPATHY PERIPHERAL
     Dosage: 1 DF, 1X/DAY (OXYCODONE- ACETAMINOPHEN 10MG-325 MG TABLET; TAKE 1 TABLET AT BEDTIME DAILY)
     Dates: start: 20131016
  9. HYDROCHLOROTHIAZIDE. [Concomitant]
     Active Substance: HYDROCHLOROTHIAZIDE
     Indication: HYPERTENSION
     Dosage: 12.5 MG, 1X/DAY (ONE TABLET IN THE MORNING )
     Dates: start: 20200127
  10. IBUPROFEN. [Concomitant]
     Active Substance: IBUPROFEN
     Indication: ARTHRALGIA
     Dosage: 600 MG, 3X/DAY (3 TIMES PER DAY WITH FOOD )
     Dates: start: 20200128
  11. METFORMIN [Concomitant]
     Active Substance: METFORMIN HYDROCHLORIDE
     Indication: DIABETES MELLITUS
     Dosage: 1000 MG, 2X/DAY (TAKE ONE TABLET TWICW DAILY)
     Dates: start: 20181001
  12. OXYBUTYNIN HYDROCHLORIDE [Concomitant]
     Active Substance: OXYBUTYNIN CHLORIDE
     Indication: HYPERTONIC BLADDER
     Dosage: 5 MG, AS NEEDED, (TAKE 1 TABLET (5MG) TWICE A DAY AS NEEDED)
     Dates: start: 20191024
  13. PIOGLITAZONE. [Concomitant]
     Active Substance: PIOGLITAZONE
     Indication: DIABETES MELLITUS
     Dosage: 15 MG, 1X/DAY
     Dates: start: 20170518
  14. MICONAZOLE. [Concomitant]
     Active Substance: MICONAZOLE
     Indication: RASH
     Dosage: UNK, 2X/DAY (APPLY EXTERNALLY BID (TWICE A DAY)
     Dates: start: 20180110
  15. TRIAMCINOLONE ACETONIDE. [Concomitant]
     Active Substance: TRIAMCINOLONE ACETONIDE
     Indication: RASH
     Dosage: (APPLY A THIN LAYER TO THE AFFECTED AREAS TOPICALLY EVERY MORNING AS NEEDED )
     Route: 061
     Dates: start: 20170814
  16. INSULIN NPH [INSULIN ISOPHANE BOVINE] [Concomitant]
     Dosage: UNK, 2X/DAY (100 HUMAN 100UNIT/ML SUBCUTANEOUS SUSPENSION; 20 UNITS SQ TWICE A DAY)
     Route: 058
  17. MEDROXYPROGESTERONE [Concomitant]
     Active Substance: MEDROXYPROGESTERONE
     Dosage: 5 MG, 1X/DAY (ONLY DAILY FOR 14 DAYS IN OCT 2019)
     Dates: start: 20190801
  18. LYRICA [Suspect]
     Active Substance: PREGABALIN
     Indication: NEURALGIA
     Dosage: 300 MG, 2X/DAY (QTY: 180, REFILLS: 1)
     Route: 048
     Dates: start: 2005
  19. LYRICA [Suspect]
     Active Substance: PREGABALIN
     Indication: NEUROPATHY PERIPHERAL
     Dosage: 300 MG, 2X/DAY (QTY: 180, REFILLS: 1)
     Route: 048
     Dates: start: 20170601
  20. DULOXETINE. [Concomitant]
     Active Substance: DULOXETINE
     Dosage: 60 MG, 1X/DAY(ONCE DAILY AFTER BREAKFAST)
     Dates: start: 20190211
  21. IBUPROFEN. [Concomitant]
     Active Substance: IBUPROFEN
     Indication: MUSCULOSKELETAL PAIN

REACTIONS (3)
  - Neuropathic arthropathy [Not Recovered/Not Resolved]
  - Headache [Unknown]
  - Foot fracture [Unknown]

NARRATIVE: CASE EVENT DATE: 201710
